FAERS Safety Report 13305727 (Version 1)
Quarter: 2017Q1

REPORT INFORMATION
  Report Type: Spontaneous
  Country: US (occurrence: US)
  Receive Date: 20170308
  Receipt Date: 20170308
  Transmission Date: 20170428
  Serious: No
  Sender: FDA-Public Use
  Company Number: None

PATIENT
  Age: 24 Year
  Sex: Female
  Weight: 63 kg

DRUGS (5)
  1. ZYRTEC [Concomitant]
     Active Substance: CETIRIZINE HYDROCHLORIDE
  2. SINGULAIR (MONTELUKAST SOD) [Concomitant]
  3. PROAIR ALBUTEROL SULFATE [Concomitant]
  4. SPIRONOLACTONE 100MG [Suspect]
     Active Substance: SPIRONOLACTONE
     Indication: ACNE
     Dosage: ?          QUANTITY:1 TABLET(S);?
     Route: 048
     Dates: start: 20170301, end: 20170307
  5. ENSKYCE [Concomitant]
     Active Substance: DESOGESTREL\ETHINYL ESTRADIOL

REACTIONS (1)
  - Vision blurred [None]

NARRATIVE: CASE EVENT DATE: 20170307
